FAERS Safety Report 24536413 (Version 1)
Quarter: 2024Q4

REPORT INFORMATION
  Report Type: Spontaneous
  Country: US (occurrence: US)
  Receive Date: 20241022
  Receipt Date: 20241022
  Transmission Date: 20250115
  Serious: No
  Sender: FRESENIUS MEDICAL CARE
  Company Number: US-FMCRTG-FMC-2410-001262

PATIENT
  Age: 75 Year
  Sex: Male
  Weight: 113 kg

DRUGS (3)
  1. DELFLEX WITH DEXTROSE 1.5% LOW MAGNESIUM LOW CALCIUM [Suspect]
     Active Substance: CALCIUM CHLORIDE\DEXTROSE\MAGNESIUM CHLORIDE\SODIUM CHLORIDE\SODIUM LACTATE
     Indication: End stage renal disease
     Dosage: 7X WEEK, EDW 113 (KG) CA 2.5 (MEQ/L) MG 0.5(MEQ/L), DEXTROSE EXCHANGES 3, FILL VOL 2800 ML CYC THERA
     Route: 033
  2. DELFLEX WITH DEXTROSE 2.5% LOW MAGNESIUM LOW CALCIUM [Suspect]
     Active Substance: CALCIUM CHLORIDE\DEXTROSE\MAGNESIUM CHLORIDE\SODIUM CHLORIDE\SODIUM LACTATE
     Indication: End stage renal disease
     Dosage: 7X WEEK, EDW 113 (KG) CA 2.5 (MEQ/L) MG 0.5(MEQ/L), DEXTROSE EXCHANGES 3, FILL VOL 2800 ML CYC THERA
     Route: 033
  3. DELFLEX WITH DEXTROSE 4.25% LOW MAGNESIUM LOW CALCIUM [Suspect]
     Active Substance: CALCIUM CHLORIDE\DEXTROSE\MAGNESIUM CHLORIDE\SODIUM CHLORIDE\SODIUM LACTATE
     Indication: End stage renal disease
     Dosage: 7X WEEK, EDW 113 (KG) CA 2.5 (MEQ/L) MG 0.5(MEQ/L), DEXTROSE EXCHANGES 3, FILL VOL 2800 ML CYC THERA
     Route: 033

REACTIONS (1)
  - Inguinal hernia [Unknown]
